FAERS Safety Report 20459936 (Version 2)
Quarter: 2022Q4

REPORT INFORMATION
  Report Type: Spontaneous
  Country: US (occurrence: US)
  Receive Date: 20220211
  Receipt Date: 20221010
  Transmission Date: 20230112
  Serious: Yes (Death)
  Sender: FDA-Public Use
  Company Number: US-SAMOHPHARM-2022000428

PATIENT

DRUGS (7)
  1. CYSTADANE [Suspect]
     Active Substance: BETAINE
     Indication: Homocystinuria
     Dosage: 3 GRAM, BID
     Route: 048
     Dates: start: 20140103
  2. CYSTADANE [Suspect]
     Active Substance: BETAINE
     Dosage: 3 GRAM, 5 TIMES DAILY (TOTAL 15 G DAILY)
     Route: 048
     Dates: end: 20220102
  3. VITAMIN B12 [Concomitant]
     Active Substance: CYANOCOBALAMIN
     Indication: Product used for unknown indication
  4. ALBUTEROL [Concomitant]
     Active Substance: ALBUTEROL
     Indication: Product used for unknown indication
  5. ALBUTEROL\IPRATROPIUM [Concomitant]
     Active Substance: ALBUTEROL\IPRATROPIUM
     Indication: Product used for unknown indication
  6. PREDNISONE [Concomitant]
     Active Substance: PREDNISONE
     Indication: Product used for unknown indication
     Dosage: 10 MILLIGRAM, QD
     Dates: start: 2019
  7. SINGULAIR [Concomitant]
     Active Substance: MONTELUKAST SODIUM
     Indication: Product used for unknown indication

REACTIONS (3)
  - COVID-19 [Fatal]
  - Pneumonia [Fatal]
  - Product use issue [Recovered/Resolved]
